FAERS Safety Report 4348528-7 (Version None)
Quarter: 2004Q2

REPORT INFORMATION
  Report Type: 
  Country: None (occurrence: None)
  Receive Date: 20040422
  Receipt Date: 20040414
  Transmission Date: 20050107
  Serious: Yes (Death)
  Sender: FDA-Public Use
  Company Number: 2004-04-0450

PATIENT
  Age: 47 Year
  Sex: Male

DRUGS (4)
  1. RIBAVIRIN [Suspect]
     Indication: HEPATITIS C
     Dosage: 600 MG QD ORAL
     Route: 048
  2. INTERFERON ALFA INJECTABLE [Suspect]
     Indication: HEPATITIS C
     Dosage: SEE IMAGE
  3. PROGRAF [Concomitant]
  4. SOLU-MEDROL [Concomitant]

REACTIONS (9)
  - CHOLESTASIS [None]
  - DRUG EFFECT DECREASED [None]
  - FATIGUE [None]
  - FIBROSIS [None]
  - GRAFT DYSFUNCTION [None]
  - HAEMOLYTIC ANAEMIA [None]
  - HEPATIC FAILURE [None]
  - LYMPHOCYTIC INFILTRATION [None]
  - PULMONARY HAEMORRHAGE [None]
